FAERS Safety Report 13072077 (Version 1)
Quarter: 2016Q4

REPORT INFORMATION
  Report Type: Spontaneous
  Country: US (occurrence: US)
  Receive Date: 20161228
  Receipt Date: 20161228
  Transmission Date: 20170207
  Serious: Yes (Disabling)
  Sender: FDA-Public Use
  Company Number: None

PATIENT
  Age: 54 Year
  Sex: Female
  Weight: 74.25 kg

DRUGS (11)
  1. METFORMEN [Concomitant]
  2. CYMBALTA [Concomitant]
     Active Substance: DULOXETINE HYDROCHLORIDE
  3. LYRICA [Concomitant]
     Active Substance: PREGABALIN
  4. BACLOFEN. [Concomitant]
     Active Substance: BACLOFEN
  5. LEVAQUIN [Suspect]
     Active Substance: LEVOFLOXACIN
     Indication: URINARY TRACT INFECTION
     Dosage: ?          QUANTITY:5 TABLET(S);?
     Route: 042
  6. XANAX [Concomitant]
     Active Substance: ALPRAZOLAM
  7. NARCO [Concomitant]
  8. CLOACE [Concomitant]
  9. INHALER TREATMENTS AEROSOL [Concomitant]
  10. C PAP [Concomitant]
  11. AMBIEN [Concomitant]
     Active Substance: ZOLPIDEM TARTRATE

REACTIONS (7)
  - Contusion [None]
  - Rash [None]
  - Nausea [None]
  - Syncope [None]
  - Musculoskeletal pain [None]
  - Anxiety [None]
  - Abdominal pain [None]

NARRATIVE: CASE EVENT DATE: 20161223
